FAERS Safety Report 4590993-4 (Version None)
Quarter: 2005Q1

REPORT INFORMATION
  Report Type: 
  Country: None (occurrence: None)
  Receive Date: 20050218
  Receipt Date: 20050203
  Transmission Date: 20050727
  Serious: Yes (Hospitalization)
  Sender: FDA-Public Use
  Company Number: 2005AP01133

PATIENT
  Age: 31 Year
  Sex: Female

DRUGS (2)
  1. SEROQUEL [Suspect]
     Dates: start: 20040629, end: 20040801
  2. CIPRAMIL [Suspect]
     Indication: DEPRESSION

REACTIONS (1)
  - INTESTINAL OBSTRUCTION [None]
